FAERS Safety Report 24559284 (Version 2)
Quarter: 2024Q4

REPORT INFORMATION
  Report Type: Report from Study
  Country: CO (occurrence: CO)
  Receive Date: 20241029
  Receipt Date: 20241106
  Transmission Date: 20250114
  Serious: Yes (Hospitalization, Other)
  Sender: BIOVITRUM
  Company Number: CO-BIOVITRUM-2024-CO-013820

PATIENT
  Age: 5 Year
  Sex: Male

DRUGS (1)
  1. ORFADIN [Suspect]
     Active Substance: NITISINONE
     Indication: Tyrosinaemia
     Route: 048

REACTIONS (1)
  - Biliary obstruction [Unknown]

NARRATIVE: CASE EVENT DATE: 20241021
